APPROVED DRUG PRODUCT: HYDROCODONE BITARTRATE AND ACETAMINOPHEN
Active Ingredient: ACETAMINOPHEN; HYDROCODONE BITARTRATE
Strength: 650MG;10MG
Dosage Form/Route: TABLET;ORAL
Application: A040143 | Product #001
Applicant: VINTAGE PHARMACEUTICALS INC
Approved: Feb 22, 1996 | RLD: No | RS: No | Type: DISCN